FAERS Safety Report 7366428-5 (Version None)
Quarter: 2011Q1

REPORT INFORMATION
  Report Type: 
  Country: None (occurrence: None)
  Receive Date: 20110311
  Receipt Date: 20110304
  Transmission Date: 20110831
  Serious: Yes (Other)
  Sender: FDA-Public Use
  Company Number: NGX_00304_2011

PATIENT
  Sex: Male

DRUGS (5)
  1. TACROLIMUS [Concomitant]
  2. ANAESTHESIOLOGY OINTMENT [Suspect]
     Indication: PRODUCT USED FOR UNKNOWN INDICATION
     Dosage: DF
     Dates: start: 20110201
  3. MORPHINE [Suspect]
     Indication: PRODUCT USED FOR UNKNOWN INDICATION
     Dosage: 3 X 5 DROPS DAILY
     Dates: start: 20110201
  4. MAGNESIUM DROPS [Suspect]
     Indication: PRODUCT USED FOR UNKNOWN INDICATION
     Dosage: 3 X 15 DROPS DAILY
     Dates: start: 20110201
  5. QUTENZA [Suspect]
     Indication: PRODUCT USED FOR UNKNOWN INDICATION
     Dosage: DF [AT ONE FOOT] TOPICAL
     Route: 061
     Dates: start: 20110101

REACTIONS (17)
  - MUSCLE SPASMS [None]
  - PRODUCT QUALITY ISSUE [None]
  - BALANCE DISORDER [None]
  - FLUID RETENTION [None]
  - DRUG INEFFECTIVE [None]
  - DISORIENTATION [None]
  - HYPOKINESIA [None]
  - CONFUSIONAL STATE [None]
  - POLYNEUROPATHY [None]
  - QUADRIPLEGIA [None]
  - UNEVALUABLE EVENT [None]
  - APPLICATION SITE PAIN [None]
  - ERYTHEMA [None]
  - PAIN IN EXTREMITY [None]
  - BACK PAIN [None]
  - ABDOMINAL PAIN UPPER [None]
  - CONCOMITANT DISEASE AGGRAVATED [None]
